FAERS Safety Report 8618598-6 (Version None)
Quarter: 2012Q3

REPORT INFORMATION
  Report Type: 
  Country: None (occurrence: None)
  Receive Date: 20120824
  Receipt Date: 20120820
  Transmission Date: 20120928
  Serious: Yes (Other)
  Sender: FDA-Public Use
  Company Number: US-PFIZER INC-2012203923

PATIENT
  Age: 69 Year
  Sex: Male

DRUGS (2)
  1. CHANTIX [Suspect]
     Indication: TOBACCO ABUSE
     Dosage: 0.5 MG, 2X/DAY
     Route: 048
     Dates: start: 20120813
  2. LIPITOR [Concomitant]
     Dosage: UNK

REACTIONS (3)
  - TENSION [None]
  - ANXIETY [None]
  - AGITATION [None]
